FAERS Safety Report 8268075-X (Version None)
Quarter: 2012Q2

REPORT INFORMATION
  Report Type: 
  Country: None (occurrence: None)
  Receive Date: 20120409
  Receipt Date: 20120330
  Transmission Date: 20120825
  Serious: Yes (Other)
  Sender: FDA-Public Use
  Company Number: US-ASTRAZENECA-2012SE21633

PATIENT
  Age: 87 Year
  Sex: Female
  Weight: 77.6 kg

DRUGS (16)
  1. PULMICORT FLEXHALER [Suspect]
     Route: 055
  2. FOSAMAX [Concomitant]
  3. SYMBICORT [Concomitant]
     Dosage: 160/4.5 MCG
  4. LISINOPRIL [Suspect]
     Route: 048
  5. COZAAR [Concomitant]
  6. VITAMIN D [Concomitant]
     Dosage: 1000 UNIT
  7. POTASSIUM CHLORIDE [Concomitant]
  8. LASIX [Concomitant]
  9. ALBUTEROL [Concomitant]
  10. ASPIRIN [Concomitant]
  11. UNITHROID [Concomitant]
  12. TAZTIA XT [Concomitant]
  13. PRADAXA [Concomitant]
  14. OMEPRAZOLE [Suspect]
     Route: 048
  15. CALCIUM+D [Concomitant]
     Dosage: 600-200 MG
  16. LANOXIN [Concomitant]

REACTIONS (21)
  - RENAL CYST [None]
  - CARDIAC FAILURE CONGESTIVE [None]
  - COUGH [None]
  - SPINAL FRACTURE [None]
  - OSTEOARTHRITIS [None]
  - PEPTIC ULCER [None]
  - HYPERCHOLESTEROLAEMIA [None]
  - CARDIAC DISORDER [None]
  - DYSPNOEA [None]
  - BREAST CANCER [None]
  - RENAL FAILURE CHRONIC [None]
  - ASTHMA [None]
  - ATRIAL FIBRILLATION [None]
  - OSTEOPENIA [None]
  - VIITH NERVE PARALYSIS [None]
  - PULMONARY HYPERTENSION [None]
  - ESSENTIAL HYPERTENSION [None]
  - HYPOTHYROIDISM [None]
  - DYSLIPIDAEMIA [None]
  - GASTROOESOPHAGEAL REFLUX DISEASE [None]
  - DRUG HYPERSENSITIVITY [None]
